FAERS Safety Report 8774709 (Version 1)
Quarter: 2012Q4

REPORT INFORMATION
  Report Type: 
  Country: JP (occurrence: JP)
  Receive Date: 20120910
  Receipt Date: 20120910
  Transmission Date: 20130627
  Serious: Yes (Other)
  Sender: FDA-Public Use
  Company Number: JP-MYLANLABS-2012S1017825

PATIENT
  Age: 60 Year
  Sex: Female

DRUGS (5)
  1. OXALIPLATIN [Suspect]
     Indication: COLON CANCER
     Dosage: 85 mg/m2 on day 1
     Route: 065
  2. FOLINIC ACID [Suspect]
     Indication: COLON CANCER
     Dosage: 200 mg/m2 on day 1
     Route: 065
  3. FLUOROURACIL [Suspect]
     Indication: COLON CANCER
     Dosage: 400 mg/m2 rapid IV infusion
     Route: 041
  4. FLUOROURACIL [Suspect]
     Indication: COLON CANCER
     Dosage: 2400 mg/m2 continuous infusion for 48h
     Route: 041
  5. OCTREOTIDE [Concomitant]
     Indication: INTESTINAL OBSTRUCTION
     Route: 065

REACTIONS (1)
  - Hyperammonaemic encephalopathy [Recovered/Resolved]
